FAERS Safety Report 7623793-9 (Version None)
Quarter: 2011Q3

REPORT INFORMATION
  Report Type: 
  Country: None (occurrence: None)
  Receive Date: 20110720
  Receipt Date: 20110714
  Transmission Date: 20111222
  Serious: Yes (Other)
  Sender: FDA-Public Use
  Company Number: CELGENEUS-087-21880-10121745

PATIENT
  Sex: Male
  Weight: 57 kg

DRUGS (35)
  1. DEXAMETHASONE [Suspect]
     Dosage: 20 MILLIGRAM
     Route: 048
     Dates: start: 20101202, end: 20101222
  2. REVLIMID [Suspect]
     Indication: MULTIPLE MYELOMA
     Dosage: 5 MILLIGRAM
     Route: 048
     Dates: start: 20100930, end: 20101017
  3. REVLIMID [Suspect]
     Dosage: 5 MILLIGRAM
     Route: 048
     Dates: start: 20101028, end: 20101117
  4. REVLIMID [Suspect]
     Dosage: 5 MILLIGRAM
     Route: 048
     Dates: start: 20110106, end: 20110201
  5. BASEN [Concomitant]
     Indication: DIABETES MELLITUS
     Dosage: .9 MILLIGRAM
     Route: 048
  6. SENNOSIDE [Concomitant]
     Dosage: 24 MILLIGRAM
     Route: 048
     Dates: start: 20110106
  7. ARGAMATE [Concomitant]
     Indication: RENAL FAILURE CHRONIC
     Dosage: 75 GRAM
     Route: 048
     Dates: start: 20091126
  8. ASPIRIN [Concomitant]
     Indication: PROPHYLAXIS
     Dosage: 100 MILLIGRAM
     Route: 048
     Dates: start: 20100930
  9. SENNOSIDE [Concomitant]
     Dosage: 24 MILLIGRAM
     Route: 048
     Dates: start: 20101202
  10. ARGAMATE [Concomitant]
     Dosage: 75 GRAM
     Route: 048
     Dates: start: 20101202
  11. ACETAMINOPHEN [Concomitant]
     Dosage: 800 MILLIGRAM
     Route: 048
     Dates: start: 20100122
  12. PANTOSIN [Concomitant]
     Dosage: 180 MILLIGRAM
     Route: 048
     Dates: start: 20110106
  13. REVLIMID [Suspect]
     Dosage: 5 MILLIGRAM
     Route: 048
     Dates: start: 20101202, end: 20101222
  14. DEXAMETHASONE [Suspect]
     Indication: MULTIPLE MYELOMA
     Dosage: 40 MILLIGRAM
     Route: 048
     Dates: start: 20100930, end: 20101117
  15. DEXAMETHASONE [Suspect]
     Dosage: 20 MILLIGRAM
     Route: 048
     Dates: start: 20110106, end: 20110201
  16. TRICHLORMETHIAZIDE [Concomitant]
     Indication: HYPERTENSION
     Dosage: 1 MILLIGRAM
     Route: 048
     Dates: start: 20100825
  17. ARGAMATE [Concomitant]
     Dosage: 50 GRAM
     Route: 048
     Dates: start: 20110106
  18. ACETAMINOPHEN [Concomitant]
     Dosage: 800 MILLIGRAM
     Route: 048
     Dates: start: 20110106
  19. PANTOSIN [Concomitant]
     Dosage: 180 MILLIGRAM
     Route: 048
     Dates: start: 20101202
  20. ASPIRIN [Concomitant]
     Dosage: 100 MILLIGRAM
     Route: 048
     Dates: start: 20101202
  21. ASPIRIN [Concomitant]
     Dosage: 100 MILLIGRAM
     Route: 048
     Dates: start: 20110106, end: 20110413
  22. ALLOZYM [Concomitant]
     Dosage: 100 MILLIGRAM
     Route: 048
     Dates: start: 20110106
  23. AMLODIPINE [Concomitant]
     Dosage: 5 MILLIGRAM
     Route: 048
     Dates: start: 20110106
  24. TRICHLORMETHIAZIDE [Concomitant]
     Dosage: 1 MILLIGRAM
     Route: 048
     Dates: start: 20101202
  25. BASEN [Concomitant]
     Dosage: .9 MILLIGRAM
     Route: 048
     Dates: start: 20101202
  26. BASEN [Concomitant]
     Dosage: .9 MILLIGRAM
     Route: 048
     Dates: start: 20110106
  27. ACETAMINOPHEN [Concomitant]
     Dosage: 800 MILLIGRAM
     Route: 048
     Dates: start: 20101202
  28. ALLOZYM [Concomitant]
     Dosage: 100 MILLIGRAM
     Route: 048
     Dates: start: 20070419
  29. AMLODIPINE [Concomitant]
     Indication: HYPERTENSION
     Dosage: 5 MILLIGRAM
     Route: 048
  30. AMLODIPINE [Concomitant]
     Dosage: 5 MILLIGRAM
     Route: 048
     Dates: start: 20101202
  31. TRICHLORMETHIAZIDE [Concomitant]
     Dosage: 1 MILLIGRAM
     Route: 048
     Dates: start: 20110106
  32. REVLIMID [Suspect]
     Dosage: 5 MILLIGRAM
     Route: 048
     Dates: start: 20110224, end: 20110309
  33. ALLOZYM [Concomitant]
     Dosage: 100 MILLIGRAM
     Route: 048
     Dates: start: 20101202
  34. SENNOSIDE [Concomitant]
     Dosage: 24 MILLIGRAM
     Route: 048
     Dates: start: 20100108
  35. PANTOSIN [Concomitant]
     Dosage: 180 MILLIGRAM
     Route: 048
     Dates: start: 20100514

REACTIONS (5)
  - ANAEMIA [None]
  - DELIRIUM [None]
  - HEPATIC FUNCTION ABNORMAL [None]
  - NEUTROPENIA [None]
  - THROMBOCYTOPENIA [None]
